FAERS Safety Report 7977211 (Version 6)
Quarter: 2015Q2

REPORT INFORMATION
  Report Type: Spontaneous
  Country: US (occurrence: US)
  Receive Date: 20110607
  Receipt Date: 20150609
  Transmission Date: 20150821
  Serious: No
  Sender: FDA-Public Use
  Company Number: US-ASTRAZENECA-2011SE11445

PATIENT
  Age: 54 Year
  Sex: Female
  Weight: 81.6 kg

DRUGS (9)
  1. PATANOL [Concomitant]
     Active Substance: OLOPATADINE HYDROCHLORIDE
  2. PRILOSEC [Suspect]
     Active Substance: OMEPRAZOLE MAGNESIUM
     Route: 048
  3. NEXIUM [Suspect]
     Active Substance: ESOMEPRAZOLE MAGNESIUM
     Indication: HYPERCHLORHYDRIA
     Route: 048
  4. ZYRTEC [Concomitant]
     Active Substance: CETIRIZINE HYDROCHLORIDE
  5. METOCLOPRAMIDE. [Concomitant]
     Active Substance: METOCLOPRAMIDE
  6. TUMS [Concomitant]
     Active Substance: CALCIUM CARBONATE
  7. ADVAIR DISKUS [Concomitant]
     Active Substance: FLUTICASONE PROPIONATE\SALMETEROL XINAFOATE
     Dosage: 250 MCG -50 MCG ONE PUFF TWICE DAILY
  8. MOTRIN [Concomitant]
     Active Substance: IBUPROFEN
  9. PROVENTIL [Concomitant]
     Active Substance: ALBUTEROL
     Dosage: 90 MCG TWO PUFFS QID PRN
     Route: 055

REACTIONS (9)
  - Cough [Unknown]
  - Pain in extremity [Unknown]
  - Vomiting [Unknown]
  - Drug dose omission [Unknown]
  - Gastrooesophageal reflux disease [Unknown]
  - Discomfort [Unknown]
  - Pain [Unknown]
  - Adverse event [Unknown]
  - Feeling abnormal [Unknown]
